FAERS Safety Report 18360725 (Version 3)
Quarter: 2020Q4

REPORT INFORMATION
  Report Type: Report from Study
  Country: BR (occurrence: BR)
  Receive Date: 20201008
  Receipt Date: 20201130
  Transmission Date: 20210114
  Serious: Yes (Other)
  Sender: FDA-Public Use
  Company Number: NVSC2020BR270235

PATIENT
  Sex: Female

DRUGS (4)
  1. PANTOPRAZOL [Suspect]
     Active Substance: PANTOPRAZOLE SODIUM
     Indication: ABDOMINAL PAIN UPPER
     Dosage: UNK (START DATE 15 DAYS AGO, FREQUENCY: ONLY WHEN SHE FEELS PAIN)
     Route: 065
  2. TRAMAL [Suspect]
     Active Substance: TRAMADOL
     Dosage: UNK
     Route: 048
  3. DECADRON [Concomitant]
     Active Substance: DEXAMETHASONE
     Indication: ANTIINFLAMMATORY THERAPY
     Dosage: UNK
     Route: 065
  4. TRAMAL [Suspect]
     Active Substance: TRAMADOL
     Indication: NAUSEA
     Dosage: UNK (ROUTE: VENOUS)
     Route: 065

REACTIONS (9)
  - Bone pain [Not Recovered/Not Resolved]
  - Anxiety [Not Recovered/Not Resolved]
  - Abdominal pain upper [Not Recovered/Not Resolved]
  - Nausea [Unknown]
  - Spinal pain [Not Recovered/Not Resolved]
  - Mood altered [Unknown]
  - Inflammation [Unknown]
  - Movement disorder [Recovered/Resolved]
  - Metastasis [Unknown]
